FAERS Safety Report 7557648-5 (Version None)
Quarter: 2011Q2

REPORT INFORMATION
  Report Type: 
  Country: None (occurrence: None)
  Receive Date: 20110620
  Receipt Date: 20110610
  Transmission Date: 20111010
  Serious: Yes (Hospitalization, Other)
  Sender: FDA-Public Use
  Company Number: GB-JNJFOC-20110307291

PATIENT
  Sex: Male
  Weight: 84.3 kg

DRUGS (17)
  1. DURAGESIC-100 [Suspect]
     Route: 062
  2. OMEPRAZOLE [Concomitant]
     Route: 048
  3. PREGABALIN [Concomitant]
     Route: 048
  4. MORPHINE [Concomitant]
     Indication: BREAKTHROUGH PAIN
     Route: 048
  5. AMITRIPTYLINE HYDROCHLORIDE [Concomitant]
     Route: 065
  6. ENALAPRIL MALEATE [Concomitant]
     Route: 065
  7. ASPIRIN [Concomitant]
     Route: 048
  8. PREGABALIN [Concomitant]
     Route: 048
  9. FERROUS SULFATE TAB [Concomitant]
     Route: 065
  10. MORPHGESIC [Concomitant]
     Indication: PRODUCT USED FOR UNKNOWN INDICATION
     Route: 065
  11. ACYCLOVIR [Concomitant]
     Route: 061
  12. ETODOLAC [Concomitant]
     Route: 048
  13. DURAGESIC-100 [Suspect]
     Indication: ARTHRITIS
     Route: 062
  14. FENTANYL-100 [Suspect]
     Indication: ARTHRITIS
     Route: 062
  15. ACETAMINOPHEN [Concomitant]
     Route: 048
  16. CITALOPRAM HYDROBROMIDE [Concomitant]
     Route: 048
  17. OMEPRAZOLE [Concomitant]
     Route: 048

REACTIONS (31)
  - DELUSION [None]
  - ERYTHEMA [None]
  - MUSCULAR WEAKNESS [None]
  - CONFUSIONAL STATE [None]
  - HEADACHE [None]
  - HALLUCINATION [None]
  - ANAEMIA [None]
  - HYPERSENSITIVITY [None]
  - CONJUNCTIVITIS [None]
  - BREAKTHROUGH PAIN [None]
  - SKIN REACTION [None]
  - GASTRIC DISORDER [None]
  - TRANSIENT ISCHAEMIC ATTACK [None]
  - DYSKINESIA [None]
  - PYREXIA [None]
  - SKIN IRRITATION [None]
  - MOOD SWINGS [None]
  - LOWER RESPIRATORY TRACT INFECTION [None]
  - CEREBROVASCULAR ACCIDENT [None]
  - ADVERSE DRUG REACTION [None]
  - SEXUAL DYSFUNCTION [None]
  - MUSCLE SPASMS [None]
  - PERIPHERAL COLDNESS [None]
  - AGGRESSION [None]
  - RESPIRATORY DISORDER [None]
  - WITHDRAWAL SYNDROME [None]
  - AMNESIA [None]
  - INFLUENZA LIKE ILLNESS [None]
  - RENAL DISORDER [None]
  - HYPOTENSION [None]
  - DIZZINESS [None]
